FAERS Safety Report 10374666 (Version 2)
Quarter: 2014Q3

REPORT INFORMATION
  Report Type: Spontaneous
  Country: US (occurrence: US)
  Receive Date: 20140811
  Receipt Date: 20140912
  Transmission Date: 20150326
  Serious: No
  Sender: FDA-Public Use
  Company Number: US-009507513-1408USA001306

PATIENT
  Age: 33 Year
  Sex: Female
  Weight: 83.9 kg

DRUGS (10)
  1. PREDNISOLONE. [Concomitant]
     Active Substance: PREDNISOLONE
  2. NAPROXEN. [Concomitant]
     Active Substance: NAPROXEN
  3. LORATADINE. [Concomitant]
     Active Substance: LORATADINE
  4. TOPIRAMATE. [Concomitant]
     Active Substance: TOPIRAMATE
  5. HYOSCYAMINE [Concomitant]
     Active Substance: HYOSCYAMINE
     Dosage: TAKES OCCASIONALLY
  6. CYCLOBENZAPR [Concomitant]
  7. CILOXAN [Concomitant]
     Active Substance: CIPROFLOXACIN HYDROCHLORIDE
  8. NEXPLANON [Suspect]
     Active Substance: ETONOGESTREL
     Indication: CONTRACEPTION
     Dosage: 3 YEAR IMPLANT. THERAPY ROUTE: IMPLANT IN LEFT ARM
     Route: 059
     Dates: start: 20130314, end: 2014
  9. RANITIDINE [Concomitant]
     Active Substance: RANITIDINE\RANITIDINE HYDROCHLORIDE
  10. TRAMADOL HYDROCHLORIDE. [Concomitant]
     Active Substance: TRAMADOL HYDROCHLORIDE

REACTIONS (9)
  - Insomnia [Unknown]
  - Fatigue [Unknown]
  - Increased appetite [Unknown]
  - Nausea [Unknown]
  - Dizziness [Unknown]
  - Abdominal tenderness [Unknown]
  - Weight increased [Unknown]
  - Unintended pregnancy [Unknown]
  - Back pain [Unknown]

NARRATIVE: CASE EVENT DATE: 2014
